FAERS Safety Report 17618319 (Version 1)
Quarter: 2020Q2

REPORT INFORMATION
  Report Type: Report from Study
  Country: CZ (occurrence: CZ)
  Receive Date: 20200402
  Receipt Date: 20200402
  Transmission Date: 20200713
  Serious: Yes (Other)
  Sender: FDA-Public Use
  Company Number: CZ-BAYER-2020-050083

PATIENT
  Age: 35 Year
  Sex: Female
  Weight: 74 kg

DRUGS (1)
  1. KYLEENA [Suspect]
     Active Substance: LEVONORGESTREL
     Indication: CONTRACEPTION
     Dosage: 17.5 ?G PER DAY CONTINUOUSLY
     Route: 015
     Dates: start: 20190820, end: 20200313

REACTIONS (4)
  - Embedded device [Recovered/Resolved]
  - Uterine adhesions [Recovered/Resolved]
  - Pelvic fluid collection [Recovered/Resolved]
  - Abdominal pain lower [Recovered/Resolved]

NARRATIVE: CASE EVENT DATE: 20200203
